FAERS Safety Report 8535282 (Version 3)
Quarter: 2012Q4

REPORT INFORMATION
  Report Type: 
  Country: ES (occurrence: ES)
  Receive Date: 20120430
  Receipt Date: 20120925
  Transmission Date: 20130627
  Serious: Yes (Other)
  Sender: FDA-Public Use
  Company Number: ES-BRISTOL-MYERS SQUIBB COMPANY-16536237

PATIENT
  Age: 60 Year
  Sex: Male

DRUGS (3)
  1. SPRYCEL [Suspect]
     Indication: CHRONIC MYELOID LEUKAEMIA
     Route: 048
     Dates: start: 20110615, end: 20120416
  2. RAMIPRIL [Concomitant]
  3. LORAZEPAM [Concomitant]

REACTIONS (4)
  - Respiratory failure [Recovering/Resolving]
  - Pleural effusion [Recovered/Resolved]
  - Acute pulmonary oedema [Recovered/Resolved]
  - Pericardial effusion [Recovered/Resolved]
